FAERS Safety Report 6017409-5 (Version None)
Quarter: 2008Q4

REPORT INFORMATION
  Report Type: 
  Country: None (occurrence: None)
  Receive Date: 20081223
  Receipt Date: 20081218
  Transmission Date: 20090506
  Serious: Yes (Death)
  Sender: FDA-Public Use
  Company Number: PHHY2008JP21157

PATIENT
  Sex: Male
  Weight: 62 kg

DRUGS (6)
  1. DIOVAN [Suspect]
     Indication: HYPERTENSION
     Dosage: 80 MG, QD
     Route: 048
     Dates: start: 20070913, end: 20071110
  2. PERDIPINE-LA [Concomitant]
     Indication: HYPERTENSION
     Dosage: 40 MG, UNK
     Route: 048
     Dates: start: 20070805, end: 20071110
  3. EPADEL [Concomitant]
     Dosage: 900 MG, UNK
     Route: 048
     Dates: start: 20070805, end: 20071110
  4. URSO 250 [Concomitant]
     Dosage: 300 MG, UNK
     Dates: start: 20070805, end: 20071110
  5. EXCEGRAN [Concomitant]
     Dosage: 200 MG, UNK
     Route: 048
     Dates: start: 20070805, end: 20071110
  6. SYMMETREL [Concomitant]
     Dosage: 300 MG, UNK
     Route: 048
     Dates: start: 20070805, end: 20071110

REACTIONS (1)
  - DEATH [None]
